FAERS Safety Report 22021507 (Version 1)
Quarter: 2023Q1

REPORT INFORMATION
  Report Type: Spontaneous
  Country: US (occurrence: US)
  Receive Date: 20230222
  Receipt Date: 20230222
  Transmission Date: 20230417
  Serious: Yes (Hospitalization)
  Sender: FDA-Public Use
  Company Number: US-JNJFOC-20230239502

PATIENT
  Age: 32 Year
  Sex: Male

DRUGS (1)
  1. IMODIUM [Suspect]
     Active Substance: LOPERAMIDE HYDROCHLORIDE
     Indication: Product used for unknown indication
     Dosage: TAKING UP TO 150 IMODIUM TABS DAILY
     Route: 065

REACTIONS (6)
  - Pancreatitis [Recovered/Resolved]
  - Drug abuse [Unknown]
  - Ascites [Recovered/Resolved]
  - Pleural effusion [Recovered/Resolved]
  - Pancreatic leak [Recovered/Resolved]
  - Splenomegaly [Recovered/Resolved]
